FAERS Safety Report 12203691 (Version 1)
Quarter: 2016Q1

REPORT INFORMATION
  Report Type: Spontaneous
  Country: US (occurrence: None)
  Receive Date: 20160322
  Receipt Date: 20160322
  Transmission Date: 20160526
  Serious: Yes (Hospitalization)
  Sender: FDA-Public Use
  Company Number: None

PATIENT
  Age: 86 Year
  Sex: Male

DRUGS (2)
  1. FAMOTIDINE 20 MG [Suspect]
     Active Substance: FAMOTIDINE
     Route: 042
  2. CEFTRIAXONE. [Suspect]
     Active Substance: CEFTRIAXONE
     Route: 042

REACTIONS (3)
  - Chest pain [None]
  - Cardiac failure [None]
  - Clostridium difficile infection [None]

NARRATIVE: CASE EVENT DATE: 20150821
